FAERS Safety Report 23395509 (Version 2)
Quarter: 2024Q1

REPORT INFORMATION
  Report Type: Spontaneous
  Country: RO (occurrence: RO)
  Receive Date: 20240112
  Receipt Date: 20240118
  Transmission Date: 20240409
  Serious: Yes (Death)
  Sender: FDA-Public Use
  Company Number: RO-002147023-NVSC2024RO006746

PATIENT
  Sex: Male

DRUGS (1)
  1. MIDOSTAURIN [Suspect]
     Active Substance: MIDOSTAURIN
     Indication: Indolent systemic mastocytosis
     Dosage: UNK
     Route: 065

REACTIONS (1)
  - Death [Fatal]
